FAERS Safety Report 5310105-9 (Version None)
Quarter: 2007Q1

REPORT INFORMATION
  Report Type: 
  Country: None (occurrence: None)
  Receive Date: 20070201
  Receipt Date: 20060810
  Transmission Date: 20070707
  Serious: Yes (Hospitalization)
  Sender: FDA-Public Use
  Company Number: US-2006-017978

PATIENT
  Age: 22 Year
  Sex: Female
  Weight: 64.4 kg

DRUGS (1)
  1. MIRENA [Suspect]
     Indication: CONTRACEPTION
     Dosage: 20 UG, CONT, INTRA-UTERINE
     Route: 015
     Dates: start: 20060629, end: 20060701

REACTIONS (4)
  - COMPLICATION OF DEVICE REMOVAL [None]
  - IUD MIGRATION [None]
  - UTERINE CERVICAL LACERATION [None]
  - UTERINE PERFORATION [None]
